FAERS Safety Report 19491328 (Version 5)
Quarter: 2021Q3

REPORT INFORMATION
  Report Type: Spontaneous
  Country: RU (occurrence: RU)
  Receive Date: 20210705
  Receipt Date: 20210909
  Transmission Date: 20211014
  Serious: Yes (Other)
  Sender: FDA-Public Use
  Company Number: RU-REGENERON PHARMACEUTICALS, INC.-2021-64570

PATIENT

DRUGS (18)
  1. PRALUENT [Suspect]
     Active Substance: ALIROCUMAB
     Indication: ARTERIOSCLEROSIS
  2. PRALUENT [Suspect]
     Active Substance: ALIROCUMAB
     Indication: DYSLIPIDAEMIA
     Dosage: 75 MG
     Route: 065
     Dates: start: 20210610, end: 20210610
  3. PRALUENT [Suspect]
     Active Substance: ALIROCUMAB
     Indication: AORTIC ARTERIOSCLEROSIS
  4. PRALUENT [Suspect]
     Active Substance: ALIROCUMAB
     Indication: EMBOLISM
  5. TYROSOLVEN [Concomitant]
     Indication: HYPERTHYROIDISM
     Dosage: 5 MG
  6. PRALUENT [Suspect]
     Active Substance: ALIROCUMAB
     Indication: CARDIAC FAILURE CHRONIC
  7. CORDARONE [Concomitant]
     Active Substance: AMIODARONE HYDROCHLORIDE
     Indication: HYPERTHYROIDISM
  8. CORDARONE [Concomitant]
     Active Substance: AMIODARONE HYDROCHLORIDE
     Indication: BASEDOW^S DISEASE
  9. PRALUENT [Suspect]
     Active Substance: ALIROCUMAB
     Indication: ANGINA PECTORIS
  10. CORDARONE [Concomitant]
     Active Substance: AMIODARONE HYDROCHLORIDE
     Indication: BASEDOW^S DISEASE
     Dosage: UNK
     Route: 065
     Dates: end: 20210613
  11. TYROSOLVEN [Concomitant]
     Indication: HYPERTHYROIDISM
     Dosage: 5 MG
  12. PRALUENT [Suspect]
     Active Substance: ALIROCUMAB
     Indication: MYOCARDIAL ISCHAEMIA
  13. CORDARONE [Concomitant]
     Active Substance: AMIODARONE HYDROCHLORIDE
     Indication: HYPERTHYROIDISM
  14. TYROSOLVEN [Concomitant]
     Indication: BASEDOW^S DISEASE
     Dosage: 10 MG
  15. TYROSOLVEN [Concomitant]
     Dosage: 10 MG
  16. PRALUENT [Suspect]
     Active Substance: ALIROCUMAB
     Indication: TYPE IIA HYPERLIPIDAEMIA
  17. PRALUENT [Suspect]
     Active Substance: ALIROCUMAB
     Indication: SINUS BRADYCARDIA
  18. TYROSOLVEN [Concomitant]
     Indication: BASEDOW^S DISEASE
     Dosage: UNK

REACTIONS (3)
  - Condition aggravated [Unknown]
  - Atrial fibrillation [Unknown]
  - Seizure [Unknown]

NARRATIVE: CASE EVENT DATE: 20210610
